FAERS Safety Report 16419144 (Version 1)
Quarter: 2019Q2

REPORT INFORMATION
  Report Type: Spontaneous
  Country: US (occurrence: US)
  Receive Date: 20190612
  Receipt Date: 20190612
  Transmission Date: 20190711
  Serious: No
  Sender: FDA-Public Use
  Company Number: US-AMGEN-USASP2019089556

PATIENT
  Age: 76 Year
  Sex: Female

DRUGS (6)
  1. PROLIA [Suspect]
     Active Substance: DENOSUMAB
     Indication: OSTEOPOROSIS POSTMENOPAUSAL
     Dosage: 60 MILLIGRAM, Q6MO
     Route: 065
  2. LOSARTAN POTASSIUM. [Concomitant]
     Active Substance: LOSARTAN POTASSIUM
     Dosage: 50 MILLIGRAM, QD
  3. CALCIUM [Concomitant]
     Active Substance: CALCIUM
  4. LOSARTAN POTASSIUM. [Concomitant]
     Active Substance: LOSARTAN POTASSIUM
     Indication: HYPERTENSION
     Dosage: 20 MILLIGRAM
  5. SIMVASTATIN. [Concomitant]
     Active Substance: SIMVASTATIN
     Dosage: 20 MILLIGRAM,NIGHTLY
  6. FISH OIL [Concomitant]
     Active Substance: FISH OIL

REACTIONS (6)
  - Anhidrosis [Unknown]
  - Fall [Unknown]
  - Lichenification [Unknown]
  - Gait disturbance [Unknown]
  - Ligament injury [Unknown]
  - Rash pruritic [Unknown]

NARRATIVE: CASE EVENT DATE: 2019
